FAERS Safety Report 13965941 (Version 1)
Quarter: 2017Q3

REPORT INFORMATION
  Report Type: Report from Study
  Country: US (occurrence: BR)
  Receive Date: 20170913
  Receipt Date: 20170913
  Transmission Date: 20171128
  Serious: Yes (Death)
  Sender: FDA-Public Use
  Company Number: US-SUNOVION-2017SUN003956

PATIENT
  Sex: Female
  Weight: 56 kg

DRUGS (1)
  1. INDACATEROL AND GLYCOPYRROLATE [Suspect]
     Active Substance: GLYCOPYRROLATE\INDACATEROL MALEATE
     Indication: CHRONIC OBSTRUCTIVE PULMONARY DISEASE
     Dosage: 1 DF (50 UGGLYCOPYRRONIUM BROMIDE 110 UG INDACATEROL), QD
     Route: 065
     Dates: start: 201703

REACTIONS (2)
  - Myocardial infarction [Fatal]
  - Malaise [Unknown]
